FAERS Safety Report 8044465-5 (Version None)
Quarter: 2012Q1

REPORT INFORMATION
  Report Type: 
  Country: None (occurrence: None)
  Receive Date: 20120111
  Receipt Date: 20120111
  Transmission Date: 20120608
  Serious: No
  Sender: FDA-Public Use
  Company Number: None

PATIENT
  Age: 73 Year
  Sex: Male
  Weight: 62.5964 kg

DRUGS (2)
  1. PROZAC [Suspect]
     Indication: MAJOR DEPRESSION
     Dosage: 20MG PO QD
     Route: 048
     Dates: start: 20100604
  2. PHENYTEK [Suspect]
     Indication: CONVULSION
     Dosage: 200MG PO BID
     Route: 048

REACTIONS (3)
  - GAIT DISTURBANCE [None]
  - FALL [None]
  - ANTICONVULSANT DRUG LEVEL INCREASED [None]
